FAERS Safety Report 4842464-5 (Version None)
Quarter: 2005Q4

REPORT INFORMATION
  Report Type: 
  Country: None (occurrence: None)
  Receive Date: 20051129
  Receipt Date: 20051110
  Transmission Date: 20060501
  Serious: Yes (Other)
  Sender: FDA-Public Use
  Company Number: US200511000065

PATIENT
  Age: 73 Year
  Sex: Female

DRUGS (2)
  1. INSULIN, ANIMAL (INSULIN, ANIMAL PORK NPH) VIAL [Suspect]
     Indication: DIABETES MELLITUS INSULIN-DEPENDENT
  2. HUMAN INSULN (RDNA ORIGIN) (HUMAN INSULIN (RDNA ORIGIN) VIAL [Suspect]
     Indication: DIABETES MELLITUS INSULIN-DEPENDENT

REACTIONS (4)
  - BLINDNESS [None]
  - BLOOD GLUCOSE INCREASED [None]
  - JOINT INJURY [None]
  - SINGLE FUNCTIONAL KIDNEY [None]
